FAERS Safety Report 8274983-6 (Version None)
Quarter: 2012Q2

REPORT INFORMATION
  Report Type: 
  Country: None (occurrence: None)
  Receive Date: 20120411
  Receipt Date: 20120328
  Transmission Date: 20120825
  Serious: Yes (Hospitalization, Other)
  Sender: FDA-Public Use
  Company Number: JP-ROCHE-1041764

PATIENT
  Sex: Male
  Weight: 44 kg

DRUGS (11)
  1. NEORAL [Concomitant]
     Indication: PROPHYLAXIS AGAINST TRANSPLANT REJECTION
     Route: 048
  2. PREDNISOLONE [Concomitant]
     Indication: PROPHYLAXIS AGAINST TRANSPLANT REJECTION
     Route: 048
  3. LAC-B [Concomitant]
     Route: 048
  4. ROCALTROL [Concomitant]
     Route: 048
  5. MIRCERA [Suspect]
     Indication: NEPHROGENIC ANAEMIA
     Route: 058
     Dates: start: 20111220, end: 20120110
  6. MYCOPHENOLATE MOFETIL (CELLCEPT) [Concomitant]
     Indication: PROPHYLAXIS AGAINST TRANSPLANT REJECTION
  7. RABEPRAZOLE SODIUM [Concomitant]
     Route: 048
  8. ALLOPURINOL [Concomitant]
  9. NESPO [Concomitant]
     Dates: start: 20120124, end: 20120131
  10. NESPO [Concomitant]
     Dates: start: 20120208, end: 20120217
  11. CALCIUM LACTATE [Concomitant]
     Route: 048

REACTIONS (3)
  - HAEMOGLOBIN DECREASED [None]
  - DIARRHOEA [None]
  - RENAL IMPAIRMENT [None]
